FAERS Safety Report 4412448-X (Version None)
Quarter: 2004Q2

REPORT INFORMATION
  Report Type: 
  Country: None (occurrence: None)
  Receive Date: 20040630
  Receipt Date: 20040331
  Transmission Date: 20050107
  Serious: No
  Sender: FDA-Public Use
  Company Number: 04P-163-0255427-00

PATIENT
  Sex: Female
  Weight: 56.6996 kg

DRUGS (9)
  1. HUMIRA [Suspect]
     Indication: PSORIATIC ARTHROPATHY
     Dosage: 40 MG, 1 IN 2 WK, SUBCUTANEOUS
     Route: 058
     Dates: start: 20040201
  2. IRBESARTAN [Concomitant]
  3. ESTRADIOL [Concomitant]
  4. MEDROXYPROGESTERONE ACETATE [Concomitant]
  5. FORTICO [Concomitant]
  6. CYANOCOBALAMIN [Concomitant]
  7. PROPACET 100 [Concomitant]
  8. CALCIUM SUPPLEMENT [Concomitant]
  9. ACETYLSALICYLIC ACID [Concomitant]

REACTIONS (1)
  - DYSPNOEA [None]
